FAERS Safety Report 5397046-6 (Version None)
Quarter: 2007Q3

REPORT INFORMATION
  Report Type: 
  Country: None (occurrence: None)
  Receive Date: 20070725
  Receipt Date: 20070717
  Transmission Date: 20080115
  Serious: Yes (Death, Life-Threatening, Hospitalization)
  Sender: FDA-Public Use
  Company Number: ES-GENENTECH-244371

PATIENT
  Sex: Female
  Weight: 70 kg

DRUGS (3)
  1. RITUXAN [Suspect]
     Indication: CHRONIC LYMPHOCYTIC LEUKAEMIA
     Dosage: 500 MG/M2, Q28D
     Route: 042
     Dates: start: 20050421
  2. FLUDARABINE PHOSPHATE [Suspect]
     Indication: CHRONIC LYMPHOCYTIC LEUKAEMIA
     Dosage: 25X3 MG/M2, Q28D
     Route: 042
     Dates: start: 20050422
  3. CYCLOPHOSPHAMIDE [Suspect]
     Indication: CHRONIC LYMPHOCYTIC LEUKAEMIA
     Dosage: 250X3 MG/M2, Q28D
     Route: 042
     Dates: start: 20050422

REACTIONS (7)
  - BLOOD GLUCOSE INCREASED [None]
  - BLOOD POTASSIUM DECREASED [None]
  - BLOOD SODIUM DECREASED [None]
  - CRYPTOGENIC ORGANISING PNEUMONIA [None]
  - EAR INFECTION [None]
  - PNEUMONIA [None]
  - RESPIRATORY FAILURE [None]
